FAERS Safety Report 8621713 (Version 2)
Quarter: 2012Q4

REPORT INFORMATION
  Report Type: 
  Country: US (occurrence: US)
  Receive Date: 20120619
  Receipt Date: 20120927
  Transmission Date: 20130627
  Serious: Yes (Hospitalization)
  Sender: FDA-Public Use
  Company Number: US-BAYER-2012-057962

PATIENT
  Age: 38 Year
  Sex: Female
  Weight: 72.56 kg

DRUGS (12)
  1. YASMIN [Suspect]
     Indication: CONTRACEPTION
     Dosage: UNK
     Dates: start: 200310, end: 200410
  2. YASMIN [Suspect]
     Indication: MENSTRUAL DISORDER
  3. NICOTROL [Concomitant]
     Dosage: 10 mg, UNK
     Route: 045
     Dates: start: 20040716
  4. XANAX [Concomitant]
     Indication: ANXIETY
     Dosage: 1 mg, TID, PRN
     Route: 048
     Dates: start: 20040819
  5. XANAX [Concomitant]
     Indication: ANXIETY
     Dosage: 1 mg, TID, PRN
     Dates: start: 20040902
  6. DARVOCET [Concomitant]
     Dosage: UNK
     Dates: start: 20040818
  7. LEXAPRO [Concomitant]
     Indication: DEPRESSION
     Dosage: 10 mg, daily
     Route: 048
     Dates: start: 20040818, end: 20040913
  8. LEXAPRO [Concomitant]
     Indication: ANXIETY
  9. LEXAPRO [Concomitant]
     Indication: STRESS
  10. EFFEXOR [Concomitant]
     Dosage: UNK
     Route: 048
     Dates: start: 20040913
  11. EFFEXOR [Concomitant]
     Dosage: UNK
     Dates: start: 20041014
  12. ULTRACET [Concomitant]
     Indication: CHEST PAIN
     Dosage: UNK, tid prn
     Route: 048
     Dates: start: 20040818

REACTIONS (8)
  - Deep vein thrombosis [Recovered/Resolved]
  - Injury [Recovered/Resolved]
  - Pain [Recovered/Resolved]
  - Abasia [Recovered/Resolved]
  - Pain in extremity [Recovered/Resolved]
  - Oedema peripheral [Recovered/Resolved]
  - Pulmonary embolism [None]
  - Emotional distress [None]
